FAERS Safety Report 9118312 (Version 1)
Quarter: 2013Q1

REPORT INFORMATION
  Report Type: Spontaneous
  Country: US (occurrence: None)
  Receive Date: 20130221
  Receipt Date: 20130221
  Transmission Date: 20140127
  Serious: No
  Sender: FDA-Public Use
  Company Number: None

PATIENT
  Age: 80 Year
  Sex: Female
  Weight: 74.84 kg

DRUGS (1)
  1. ONGLYZA 5 MG BRISTOL-MYERS SQUIBB [Suspect]
     Indication: DIABETES MELLITUS
     Route: 048
     Dates: start: 20120206, end: 20130216

REACTIONS (1)
  - Blood urine present [None]
